FAERS Safety Report 7969569-4 (Version None)
Quarter: 2011Q4

REPORT INFORMATION
  Report Type: 
  Country: None (occurrence: None)
  Receive Date: 20111212
  Receipt Date: 20111130
  Transmission Date: 20120403
  Serious: Yes (Hospitalization, Other)
  Sender: FDA-Public Use
  Company Number: DE-PFIZER INC-049-0073-990003

PATIENT
  Age: 19 Month
  Sex: Male
  Weight: 13 kg

DRUGS (34)
  1. PHENYTOIN [Suspect]
     Dosage: UNK
     Dates: start: 19961114, end: 19961124
  2. DOPAMINE HYDROCHLORIDE [Suspect]
     Dosage: UNK
     Dates: start: 19961210
  3. HYDROMEDIN [Suspect]
     Dosage: UNK
     Dates: start: 19961212
  4. METHYLPREDNISOLONE [Suspect]
     Dosage: UNK
     Dates: start: 19961124
  5. ZIENAM [Suspect]
     Dosage: UNK
     Dates: start: 19961201
  6. METHOTREXATE SODIUM [Suspect]
     Dosage: UNK
     Dates: start: 19961127, end: 19961129
  7. NEUPOGEN [Suspect]
     Indication: BONE MARROW TRANSPLANT
     Dosage: UNK
     Route: 042
     Dates: start: 19961125
  8. NOREPINEPHRINE BITARTRATE [Suspect]
     Dosage: UNK
     Dates: start: 19961210
  9. BACTRIM [Suspect]
     Dosage: UNK
     Dates: start: 19961129
  10. PHENOBARBITAL TAB [Suspect]
     Dosage: UNK
     Dates: start: 19961209
  11. NOVALGIN [Suspect]
     Dosage: UNK
     Dates: start: 19961120, end: 19961126
  12. ALPROSTADIL [Suspect]
     Dosage: UNK
     Dates: start: 19961201
  13. TOBRAMYCIN [Suspect]
     Dosage: UNK
     Dates: start: 19961124
  14. SULFADIAZINE [Suspect]
     Dosage: UNK
     Dates: start: 19961116, end: 19961127
  15. MULTIVITAMIN ADDITIVE [Suspect]
     Dosage: UNK
     Dates: start: 19961127
  16. ETOPOSIDE [Suspect]
     Dosage: UNK
     Dates: start: 19961122, end: 19961122
  17. FENTANYL [Suspect]
     Dosage: UNK
     Dates: start: 19961209
  18. PANCURONIUM BROMIDE [Suspect]
     Dosage: UNK
     Dates: start: 19961213, end: 19961213
  19. DIFLUCAN [Suspect]
     Dosage: UNK
     Dates: start: 19961117, end: 19961125
  20. AMBISOME [Suspect]
     Dosage: 40MG DAILY
     Dates: start: 19961124
  21. MIDAZOLAM HCL [Suspect]
     Dosage: UNK
     Dates: start: 19961209
  22. POLYGAM S/D [Suspect]
     Dosage: UNK
     Dates: start: 19961127, end: 19961210
  23. MORPHINE HYDROCHLORIDE [Suspect]
     Dosage: UNK
     Dates: start: 19961130
  24. MUCOSOLVAN [Suspect]
     Dosage: UNK
     Dates: start: 19961211
  25. ALDACTONE [Suspect]
     Dosage: UNK
     Dates: start: 19961204
  26. ACETAMINOPHEN [Suspect]
     Dosage: UNK
     Dates: start: 19961120, end: 19961126
  27. ZANTAC [Suspect]
     Dosage: UNK
     Dates: end: 19961211
  28. ZOVIRAX [Suspect]
     Dosage: UNK
     Dates: start: 19961127
  29. CLINDAMYCIN HCL [Suspect]
     Dosage: UNK
     Dates: start: 19961203
  30. ACETYLCYSTEINE [Suspect]
     Dosage: UNK
     Dates: start: 19961130
  31. CEFTAZIDIME SODIUM [Suspect]
     Dosage: UNK
     Dates: start: 19961122, end: 19961130
  32. FUROSEMIDE [Suspect]
     Dosage: UNK
     Dates: start: 19961124
  33. MICRONEFRIN [Suspect]
     Dosage: UNK
     Dates: start: 19961206
  34. MULTIVITAMIN ADDITIVE [Suspect]
     Dosage: UNK
     Dates: start: 19961126

REACTIONS (4)
  - STEVENS-JOHNSON SYNDROME [None]
  - ANGIOEDEMA [None]
  - OBSTRUCTIVE AIRWAYS DISORDER [None]
  - ASCITES [None]
